FAERS Safety Report 15467037 (Version 2)
Quarter: 2018Q4

REPORT INFORMATION
  Report Type: Spontaneous
  Country: US (occurrence: US)
  Receive Date: 20181005
  Receipt Date: 20181010
  Transmission Date: 20190204
  Serious: Yes (Hospitalization, Other)
  Sender: FDA-Public Use
  Company Number: US-ROCHE-2193271

PATIENT
  Age: 8 Year
  Sex: Female

DRUGS (1)
  1. PULMOZYME [Suspect]
     Active Substance: DORNASE ALFA
     Indication: PRODUCT USED FOR UNKNOWN INDICATION
     Dosage: FORM STRENGTH: 1MG/ML AMPOULE WITH REFRIGERATION
     Route: 065
     Dates: start: 20180424

REACTIONS (2)
  - Sinusitis fungal [Unknown]
  - Aspergillus test positive [Unknown]

NARRATIVE: CASE EVENT DATE: 20180913
